FAERS Safety Report 22171481 (Version 5)
Quarter: 2023Q4

REPORT INFORMATION
  Report Type: Report from Study
  Country: BR (occurrence: BR)
  Receive Date: 20230404
  Receipt Date: 20231030
  Transmission Date: 20240110
  Serious: Yes (Life-Threatening, Hospitalization, Other)
  Sender: FDA-Public Use
  Company Number: BR-002147023-NVSC2022BR145682

PATIENT

DRUGS (6)
  1. RUXOLITINIB [Suspect]
     Active Substance: RUXOLITINIB
     Indication: Myelofibrosis
     Dosage: 40 MG (2 TABLETS DAILY 2 MONTHS AGO)
     Route: 065
  2. RUXOLITINIB [Suspect]
     Active Substance: RUXOLITINIB
     Dosage: 20 MG, QD (START DATE: 1 TABLET PER DAY, THREE MONTHS AGO)
     Route: 048
  3. RUXOLITINIB [Suspect]
     Active Substance: RUXOLITINIB
     Dosage: UNK
     Route: 065
  4. RUXOLITINIB [Suspect]
     Active Substance: RUXOLITINIB
     Dosage: 20 MG, Q12H (40MG DAILY, BEING 2 PILLS OF 20MG PER DAY (EVERY 12 HOURS)
     Route: 065
  5. RUXOLITINIB [Suspect]
     Active Substance: RUXOLITINIB
     Dosage: 20 MG, BID (40 MG/DAY)
     Route: 065
  6. RUXOLITINIB [Suspect]
     Active Substance: RUXOLITINIB
     Dosage: UNK
     Route: 065
     Dates: end: 202303

REACTIONS (29)
  - Abdominal discomfort [Not Recovered/Not Resolved]
  - Fear [Unknown]
  - Lung disorder [Not Recovered/Not Resolved]
  - Anaemia [Recovering/Resolving]
  - Pain [Unknown]
  - Discomfort [Recovered/Resolved]
  - Fatigue [Not Recovered/Not Resolved]
  - Pyrexia [Recovering/Resolving]
  - Genital herpes [Recovering/Resolving]
  - Illness [Unknown]
  - Herpes virus infection [Recovered/Resolved]
  - Face injury [Unknown]
  - Decreased immune responsiveness [Unknown]
  - Condition aggravated [Unknown]
  - Pruritus [Not Recovered/Not Resolved]
  - Oral herpes [Recovering/Resolving]
  - Platelet count decreased [Not Recovered/Not Resolved]
  - Herpes virus infection [Not Recovered/Not Resolved]
  - Abdominal pain upper [Recovering/Resolving]
  - Pain in extremity [Unknown]
  - Painful respiration [Not Recovered/Not Resolved]
  - Post procedural complication [Unknown]
  - Splenomegaly [Recovering/Resolving]
  - Scab [Not Recovered/Not Resolved]
  - Fatigue [Recovered/Resolved]
  - Malaise [Unknown]
  - Urticaria [Not Recovered/Not Resolved]
  - Inappropriate schedule of product administration [Unknown]
  - Asthenia [Not Recovered/Not Resolved]

NARRATIVE: CASE EVENT DATE: 20220501
